FAERS Safety Report 24967012 (Version 2)
Quarter: 2025Q1

REPORT INFORMATION
  Report Type: Spontaneous
  Country: US (occurrence: US)
  Receive Date: 20250213
  Receipt Date: 20250328
  Transmission Date: 20250408
  Serious: No
  Sender: BIOMARIN
  Company Number: US-SA-2025SA036217

PATIENT

DRUGS (1)
  1. LARONIDASE [Suspect]
     Active Substance: LARONIDASE
     Indication: Mucopolysaccharidosis I
     Dosage: 8.7 UNK, QW
     Route: 042
     Dates: start: 202407

REACTIONS (6)
  - Skin exfoliation [Not Recovered/Not Resolved]
  - Condition aggravated [Not Recovered/Not Resolved]
  - Adenoidectomy [Recovering/Resolving]
  - Ear tube insertion [Recovering/Resolving]
  - Central venous catheterisation [Recovering/Resolving]
  - Pyrexia [Recovering/Resolving]
